FAERS Safety Report 10660658 (Version 1)
Quarter: 2014Q4

REPORT INFORMATION
  Report Type: Spontaneous
  Country: US (occurrence: US)
  Receive Date: 20141217
  Receipt Date: 20141217
  Transmission Date: 20150529
  Serious: No
  Sender: FDA-Public Use
  Company Number: US-GLAXOSMITHKLINE-A1089510A

PATIENT

DRUGS (5)
  1. VOTRIENT [Suspect]
     Active Substance: PAZOPANIB HYDROCHLORIDE
     Indication: PRODUCT USED FOR UNKNOWN INDICATION
     Dosage: 200 MG TABLET AT UNKNOWN DOSING
     Route: 065
  2. ZETIA [Concomitant]
     Active Substance: EZETIMIBE
  3. MUCINEX [Concomitant]
     Active Substance: GUAIFENESIN
  4. NASOCORT [Concomitant]
     Active Substance: TRIAMCINOLONE ACETONIDE
  5. IRON [Concomitant]
     Active Substance: IRON

REACTIONS (3)
  - Asthma [Unknown]
  - Impaired work ability [Unknown]
  - Multiple allergies [Unknown]
